FAERS Safety Report 4427710-4 (Version None)
Quarter: 2004Q3

REPORT INFORMATION
  Report Type: 
  Country: None (occurrence: None)
  Receive Date: 20040817
  Receipt Date: 20040813
  Transmission Date: 20050211
  Serious: Yes (Other)
  Sender: FDA-Public Use
  Company Number: AU-ROCHE-377439

PATIENT
  Sex: Male

DRUGS (1)
  1. FUZEON [Suspect]
     Indication: DRUG USE FOR UNKNOWN INDICATION
     Route: 058
     Dates: start: 20040705, end: 20040705

REACTIONS (4)
  - BACK PAIN [None]
  - CHEST PAIN [None]
  - EYE REDNESS [None]
  - MYALGIA [None]
